FAERS Safety Report 19397563 (Version 1)
Quarter: 2021Q2

REPORT INFORMATION
  Report Type: Spontaneous
  Country: US (occurrence: US)
  Receive Date: 20210609
  Receipt Date: 20210609
  Transmission Date: 20210717
  Serious: Yes (Hospitalization)
  Sender: FDA-Public Use
  Company Number: US-PRINSTON PHARMACEUTICAL INC.-2021PRN00197

PATIENT
  Age: 15 Year
  Sex: Female

DRUGS (1)
  1. CLONIDINE HYDROCHLORIDE. [Suspect]
     Active Substance: CLONIDINE HYDROCHLORIDE
     Dosage: 247 TABLETS; 100 MCG TABLET
     Route: 048

REACTIONS (5)
  - Bradycardia [Recovered/Resolved]
  - Seizure [Recovered/Resolved]
  - Posterior reversible encephalopathy syndrome [Recovered/Resolved]
  - Overdose [Recovered/Resolved]
  - Hypertension [Recovered/Resolved]
